FAERS Safety Report 8633203 (Version 2)
Quarter: 2014Q1

REPORT INFORMATION
  Report Type: Spontaneous
  Country: US (occurrence: None)
  Receive Date: 20120323
  Receipt Date: 20130305
  Transmission Date: 20141002
  Serious: Yes (Hospitalization)
  Sender: FDA-Public Use
  Company Number: 163-21880-11090923

PATIENT
  Age: 87 Year
  Sex: Female
  Weight: 56.25 kg

DRUGS (3)
  1. REVLIMID [Suspect]
     Indication: PLASMA CELL MYELOMA
     Dosage: 10 MG, DAILY X 21 DAYS, THEN 7 DAYS OFF PO
     Route: 048
     Dates: start: 20100805
  2. ASA ( ACETYLSALICYLIC ACID) [Concomitant]
  3. ZOMETA ( ZOLEDRONIC ACID) [Concomitant]

REACTIONS (3)
  - Pneumonia [None]
  - Cough [None]
  - Upper respiratory tract infection [None]
